FAERS Safety Report 19134185 (Version 1)
Quarter: 2021Q2

REPORT INFORMATION
  Report Type: Spontaneous
  Country: US (occurrence: US)
  Receive Date: 20210414
  Receipt Date: 20210414
  Transmission Date: 20210717
  Serious: Yes (Hospitalization)
  Sender: FDA-Public Use
  Company Number: None

PATIENT
  Age: 68 Year
  Sex: Female
  Weight: 54.88 kg

DRUGS (7)
  1. GABAPENTIN 300MG [Concomitant]
     Active Substance: GABAPENTIN
  2. CAPECITABINE. [Suspect]
     Active Substance: CAPECITABINE
     Indication: BREAST CANCER
     Route: 048
     Dates: start: 20210129, end: 20210414
  3. ONDANSETRON 4MG [Concomitant]
     Active Substance: ONDANSETRON
  4. LOSARTAN 25MG [Concomitant]
     Active Substance: LOSARTAN
  5. PANTOPRAZOLE 40MG [Concomitant]
     Active Substance: PANTOPRAZOLE SODIUM
  6. CAPECITABINE. [Suspect]
     Active Substance: CAPECITABINE
     Indication: BREAST CANCER
     Route: 048
     Dates: start: 20200828, end: 20210414
  7. TYLENOL [Concomitant]
     Active Substance: ACETAMINOPHEN

REACTIONS (1)
  - Malaise [None]

NARRATIVE: CASE EVENT DATE: 20210413
